FAERS Safety Report 8216092-8 (Version None)
Quarter: 2012Q1

REPORT INFORMATION
  Report Type: 
  Country: None (occurrence: None)
  Receive Date: 20120316
  Receipt Date: 20120315
  Transmission Date: 20120608
  Serious: No
  Sender: FDA-Public Use
  Company Number: US-BAYER-2012-026114

PATIENT
  Age: 51 Year
  Sex: Female
  Weight: 90.703 kg

DRUGS (3)
  1. CHOLESTEROL MEDICATION [Concomitant]
  2. ULTRAVIST 150 [Suspect]
     Indication: COMPUTERISED TOMOGRAM ABDOMEN
     Dosage: 100 ML, ONCE
     Route: 042
     Dates: start: 20120315
  3. BLOOD PRESSURE MEDICATION [Concomitant]

REACTIONS (1)
  - URTICARIA [None]
